FAERS Safety Report 13782494 (Version 2)
Quarter: 2017Q3

REPORT INFORMATION
  Report Type: Spontaneous
  Country: US (occurrence: US)
  Receive Date: 20170724
  Receipt Date: 20170809
  Transmission Date: 20171127
  Serious: No
  Sender: FDA-Public Use
  Company Number: US-009507513-1707USA007121

PATIENT
  Age: 24 Year
  Sex: Female
  Weight: 85.71 kg

DRUGS (1)
  1. NEXPLANON [Suspect]
     Active Substance: ETONOGESTREL
     Dosage: 1 IMPLANT/ EVERY 3 YEARS
     Route: 059
     Dates: start: 20160902

REACTIONS (2)
  - No adverse event [Unknown]
  - Device kink [Not Recovered/Not Resolved]
